FAERS Safety Report 9931031 (Version 1)
Quarter: 2014Q1

REPORT INFORMATION
  Report Type: Report from Study
  Country: AU (occurrence: AU)
  Receive Date: 20140227
  Receipt Date: 20140227
  Transmission Date: 20141002
  Serious: Yes (Hospitalization, Disabling, Other)
  Sender: FDA-Public Use
  Company Number: PHHY2014AU020512

PATIENT
  Age: 62 Year
  Sex: Female

DRUGS (5)
  1. AFINITOR [Suspect]
     Indication: BREAST CANCER METASTATIC
     Dosage: 10 MG, UNK
     Route: 048
  2. LETROZOLE [Concomitant]
  3. DENOSUMAB [Concomitant]
  4. CALTRATE [Concomitant]
  5. VITAMIN D [Concomitant]

REACTIONS (3)
  - Tympanic membrane perforation [Recovering/Resolving]
  - Stomatitis [Recovered/Resolved]
  - Malignant neoplasm progression [Not Recovered/Not Resolved]
